FAERS Safety Report 16674903 (Version 1)
Quarter: 2019Q3

REPORT INFORMATION
  Report Type: Spontaneous
  Country: US (occurrence: US)
  Receive Date: 20190806
  Receipt Date: 20190806
  Transmission Date: 20191004
  Serious: No
  Sender: FDA-Public Use
  Company Number: US-SA-2019SA206216

PATIENT
  Age: 83 Year
  Sex: Female

DRUGS (2)
  1. PLAVIX [Suspect]
     Active Substance: CLOPIDOGREL BISULFATE
     Dosage: UNK
     Route: 065
  2. PRALUENT [Suspect]
     Active Substance: ALIROCUMAB
     Indication: LOW DENSITY LIPOPROTEIN
     Dosage: 150 MG (EVERY 14 DAYS)
     Route: 065
     Dates: start: 20190514

REACTIONS (5)
  - Cough [Unknown]
  - Rhinorrhoea [Unknown]
  - Dry mouth [Unknown]
  - Condition aggravated [Unknown]
  - Dry eye [Unknown]
